FAERS Safety Report 23160892 (Version 1)
Quarter: 2023Q4

REPORT INFORMATION
  Report Type: Spontaneous
  Country: NL (occurrence: NL)
  Receive Date: 20231108
  Receipt Date: 20231108
  Transmission Date: 20240109
  Serious: No
  Sender: FDA-Public Use
  Company Number: NL-SCALL-2022-190306

PATIENT
  Sex: Male
  Weight: 86 kg

DRUGS (1)
  1. DUTASTERIDE [Suspect]
     Active Substance: DUTASTERIDE
     Indication: Micturition disorder
     Dosage: 0.5 MG, QD
     Route: 065
     Dates: start: 20220930

REACTIONS (3)
  - Tinnitus [Not Recovered/Not Resolved]
  - Libido decreased [Not Recovered/Not Resolved]
  - Ear discomfort [Not Recovered/Not Resolved]

NARRATIVE: CASE EVENT DATE: 20221101
